FAERS Safety Report 4748690-8 (Version None)
Quarter: 2005Q3

REPORT INFORMATION
  Report Type: 
  Country: None (occurrence: None)
  Receive Date: 20050817
  Receipt Date: 20050808
  Transmission Date: 20060218
  Serious: Yes (Other)
  Sender: FDA-Public Use
  Company Number: 2005112363

PATIENT
  Age: 63 Year
  Sex: Female

DRUGS (3)
  1. PROVERA [Suspect]
     Indication: HORMONE REPLACEMENT THERAPY
     Dates: start: 19860101
  2. PREMARIN [Suspect]
     Indication: HORMONE REPLACEMENT THERAPY
     Dates: start: 19860101
  3. PREMPRO (ESTORGENS CONJUGATED, MEDROXYPROGESTERONE ACETATE) [Suspect]
     Indication: HORMONE REPLACEMENT THERAPY
     Dates: start: 19860101

REACTIONS (3)
  - BREAST CANCER FEMALE [None]
  - OESTROGEN RECEPTOR ASSAY POSITIVE [None]
  - PROGESTERONE RECEPTOR ASSAY POSITIVE [None]
